FAERS Safety Report 23307370 (Version 3)
Quarter: 2024Q1

REPORT INFORMATION
  Report Type: Report from Study
  Country: IL (occurrence: IL)
  Receive Date: 20231218
  Receipt Date: 20240103
  Transmission Date: 20240410
  Serious: Yes (Death, Hospitalization)
  Sender: FDA-Public Use
  Company Number: IL-ABBVIE-5541205

PATIENT
  Age: 77 Year
  Sex: Male

DRUGS (2)
  1. CARBIDOPA\LEVODOPA [Suspect]
     Active Substance: CARBIDOPA\LEVODOPA
     Indication: Parkinson^s disease
     Route: 050
     Dates: start: 20170610
  2. CARBIDOPA\LEVODOPA [Suspect]
     Active Substance: CARBIDOPA\LEVODOPA
     Dosage: MORNING DOSE 3ML. CONTINUOUS DOSE 2.4ML EXTRA DOSE 1.5ML
     Route: 050

REACTIONS (5)
  - Death [Fatal]
  - Product lot number issue [Unknown]
  - Pyrexia [Unknown]
  - Cough [Unknown]
  - Pneumonia [Unknown]

NARRATIVE: CASE EVENT DATE: 20231230
